FAERS Safety Report 23808086 (Version 3)
Quarter: 2024Q2

REPORT INFORMATION
  Report Type: Spontaneous
  Country: BE (occurrence: BE)
  Receive Date: 20240502
  Receipt Date: 20240610
  Transmission Date: 20240716
  Serious: Yes (Hospitalization, Other)
  Sender: FDA-Public Use
  Company Number: BE-ROCHE-3431519

PATIENT
  Age: 67 Year
  Sex: Male
  Weight: 91.5 kg

DRUGS (29)
  1. CARBOPLATIN [Suspect]
     Active Substance: CARBOPLATIN
     Indication: Small cell lung cancer extensive stage
     Dosage: 440 MG, EVERY 3 WEEKS (ON 09AUG2023, MOST RECENT DOSE OF CARBOPLATIN 540 MG GIVEN PRIOR TO EVENTS)
     Route: 042
     Dates: start: 20230606
  2. CARBOPLATIN [Suspect]
     Active Substance: CARBOPLATIN
     Dosage: 540 MG (ON 09AUG2023, MOST RECENT DOSE OF CARBOPLATIN 540 MG GIVEN PRIOR TO EVENTS)
     Route: 042
     Dates: start: 20230809
  3. ETOPOSIDE [Suspect]
     Active Substance: ETOPOSIDE
     Indication: Small cell lung cancer extensive stage
     Dosage: 207 MG (ON 09AUG2023, MOST RECENT DOSE OF ETOPOSIDE 213 MG GIVEN PRIOR TO EVENTS)
     Route: 042
     Dates: start: 20230606
  4. ETOPOSIDE [Suspect]
     Active Substance: ETOPOSIDE
     Dosage: 213 MG (ON 09AUG2023, MOST RECENT DOSE OF ETOPOSIDE 213 MG GIVEN PRIOR TO EVENTS)
     Route: 042
     Dates: start: 20230809
  5. ATEZOLIZUMAB [Suspect]
     Active Substance: ATEZOLIZUMAB
     Indication: Small cell lung cancer extensive stage
     Dosage: 1200 MG, EVERY 3 WEEKS (19SEP2023, MOST RECENT DOSE OF ATEZOLIZUMAB 1200 MG GIVEN PRIOR TO EVENTS)
     Route: 042
     Dates: start: 20230606
  6. ATEZOLIZUMAB [Suspect]
     Active Substance: ATEZOLIZUMAB
     Dosage: UNK
  7. ATEZOLIZUMAB [Suspect]
     Active Substance: ATEZOLIZUMAB
     Dosage: 1200 MG, EVERY 3 WEEKS (19SEP2023, MOST RECENT DOSE OF ATEZOLIZUMAB 1200 MG GIVEN PRIOR TO EVENTS)
     Route: 042
     Dates: start: 20230919
  8. ALPRAZOLAM [Concomitant]
     Active Substance: ALPRAZOLAM
     Indication: Insomnia
     Dosage: UNK
     Dates: start: 202304
  9. FOLIC ACID [Concomitant]
     Active Substance: FOLIC ACID
     Indication: Folate deficiency
     Dosage: UNK
     Dates: start: 20220213
  10. AKYNZEO (NETUPITANT\PALONOSETRON) [Concomitant]
     Active Substance: NETUPITANT\PALONOSETRON
     Indication: Premedication
     Dosage: UNK
     Dates: start: 20230606
  11. NOBITEN [NEBIVOLOL] [Concomitant]
     Indication: Hypertension
     Dosage: UNK
     Dates: start: 202104
  12. LURBINECTEDIN [Concomitant]
     Active Substance: LURBINECTEDIN
     Indication: Small cell lung cancer extensive stage
     Dosage: 6.9 MG, EVERY 3 WEEKS (19SEP2023 MOST RECENT DOSE OF LURBINECTEDIN 6.9 MG GIVEN PRIOR TO EVENTS)
     Dates: start: 20230830
  13. LURBINECTEDIN [Concomitant]
     Active Substance: LURBINECTEDIN
     Dosage: 6.9 MG, EVERY 3 WEEKS (19SEP2023 MOST RECENT DOSE OF LURBINECTEDIN 6.9 MG GIVEN PRIOR TO EVENTS)
     Dates: start: 20230919
  14. ASPIRIN [Concomitant]
     Active Substance: ASPIRIN
     Dosage: UNK
     Dates: start: 202109
  15. DICLOFENAC [Concomitant]
     Active Substance: DICLOFENAC
     Indication: Phlebitis
     Dosage: UNK
     Dates: start: 20231006, end: 20231020
  16. SODIUM PICOSULFATE [Concomitant]
     Active Substance: SODIUM PICOSULFATE
     Indication: Constipation
     Dosage: UNK
     Dates: start: 20231021
  17. AMITRIPTYLINE HYDROCHLORIDE [Concomitant]
     Active Substance: AMITRIPTYLINE HYDROCHLORIDE
     Indication: Muscle contractions involuntary
     Dosage: UNK
     Dates: start: 202304
  18. D VITAL [CALCIUM CARBONATE;COLECALCIFEROL] [Concomitant]
     Dosage: UNK
     Dates: start: 20230628
  19. MOVICOL [Concomitant]
     Active Substance: POLYETHYLENE GLYCOL 3350\POTASSIUM CHLORIDE\SODIUM BICARBONATE\SODIUM CHLORIDE
     Indication: Constipation
     Dosage: UNK
     Dates: start: 202306
  20. PEGFILGRASTIM [Concomitant]
     Active Substance: PEGFILGRASTIM
     Dosage: 6 MG, EVERY 3 WEEKS
     Dates: start: 20230630
  21. SOLU-MEDROL [Concomitant]
     Active Substance: METHYLPREDNISOLONE SODIUM SUCCINATE
     Indication: Premedication
     Dosage: 40 MG, EVERY 3 WEEKS
     Dates: start: 20230606
  22. NICORETTE [Concomitant]
     Active Substance: NICOTINE
     Dosage: UNK
     Dates: start: 202304
  23. PANTOPRAZOLE [Concomitant]
     Active Substance: PANTOPRAZOLE
     Dosage: UNK
     Dates: start: 202305
  24. ATORVASTATIN [Concomitant]
     Active Substance: ATORVASTATIN
     Indication: Hyperlipidaemia
     Dosage: UNK
     Dates: start: 202109
  25. PRUCALOPRIDE [Concomitant]
     Active Substance: PRUCALOPRIDE
     Dosage: UNK
     Dates: start: 20240102, end: 20240108
  26. ALIZAPRIDE HYDROCHLORIDE [Concomitant]
     Active Substance: ALIZAPRIDE HYDROCHLORIDE
     Dosage: UNK
     Dates: start: 20240125
  27. ARANESP [Concomitant]
     Active Substance: DARBEPOETIN ALFA
     Indication: Anaemia
     Dosage: UNK
     Dates: start: 20240213, end: 20240213
  28. ARANESP [Concomitant]
     Active Substance: DARBEPOETIN ALFA
     Dosage: UNK
     Dates: start: 20240305, end: 20240305
  29. XGEVA [Concomitant]
     Active Substance: DENOSUMAB
     Dosage: UNK
     Dates: start: 20230718

REACTIONS (1)
  - Pneumonitis [Recovering/Resolving]

NARRATIVE: CASE EVENT DATE: 20230928
